FAERS Safety Report 4409552-9 (Version None)
Quarter: 2004Q3

REPORT INFORMATION
  Report Type: 
  Country: None (occurrence: None)
  Receive Date: 20040723
  Receipt Date: 20040713
  Transmission Date: 20050211
  Serious: Yes (Hospitalization)
  Sender: FDA-Public Use
  Company Number: 2004AP03677

PATIENT
  Age: 33 Year
  Sex: Female

DRUGS (2)
  1. IRESSA [Suspect]
     Indication: NON-SMALL CELL LUNG CANCER
     Dosage: 250 MG DAILY PO
     Route: 048
     Dates: start: 20040427, end: 20040709
  2. MS CONTIN [Concomitant]

REACTIONS (3)
  - AMENORRHOEA [None]
  - INTERSTITIAL LUNG DISEASE [None]
  - RASH [None]
